FAERS Safety Report 21385355 (Version 4)
Quarter: 2022Q4

REPORT INFORMATION
  Report Type: Report from Study
  Country: US (occurrence: US)
  Receive Date: 20220928
  Receipt Date: 20221128
  Transmission Date: 20230113
  Serious: No
  Sender: FDA-Public Use
  Company Number: US-AGIOS-2209US03139

PATIENT
  Sex: Female

DRUGS (3)
  1. MITAPIVAT [Suspect]
     Active Substance: MITAPIVAT
     Indication: Pyruvate kinase deficiency anaemia
     Dosage: 5 MILLIGRAM, BID
     Route: 048
     Dates: start: 20220823
  2. MITAPIVAT [Suspect]
     Active Substance: MITAPIVAT
     Dosage: 50 MILLIGRAM
     Route: 048
     Dates: start: 20220826
  3. MITAPIVAT [Suspect]
     Active Substance: MITAPIVAT
     Dosage: 100 MILLIGRAM, QD
     Route: 048
     Dates: start: 20220826

REACTIONS (4)
  - Asthenia [Unknown]
  - Thirst [Unknown]
  - Dry mouth [Unknown]
  - Haemoglobin decreased [Unknown]
